FAERS Safety Report 18202255 (Version 2)
Quarter: 2020Q3

REPORT INFORMATION
  Report Type: Spontaneous
  Country: DE (occurrence: DE)
  Receive Date: 20200827
  Receipt Date: 20200901
  Transmission Date: 20201103
  Serious: Yes (Disabling, Other)
  Sender: FDA-Public Use
  Company Number: DE-TEVA-2020-DE-1819718

PATIENT
  Age: 54 Year
  Sex: Male
  Weight: 90 kg

DRUGS (6)
  1. PREGABALIN 75 MG [Suspect]
     Active Substance: PREGABALIN
     Indication: NEURALGIA
  2. OXYCODON 5 MG RETARD [Concomitant]
     Dosage: 5 MG
     Dates: start: 201812, end: 201902
  3. PREGABALIN 75 MG [Suspect]
     Active Substance: PREGABALIN
     Indication: LUMBAR RADICULOPATHY
     Dosage: 1?1?1?0, FOR SEVERAL MONTHS, UNIT DOSE: 225 MG
     Route: 048
     Dates: start: 201812, end: 201902
  4. PREGABALIN 75 MG [Suspect]
     Active Substance: PREGABALIN
     Indication: INTERVERTEBRAL DISC OPERATION
  5. TILIDIN STADA 100 MG/8 MG RETARDTABLETTEN [Concomitant]
     Indication: SPINAL DECOMPRESSION
     Dosage: 1?0?2?0, 3 DOSAGE FORMS
     Dates: start: 201812, end: 201902
  6. NOVAMINSULFON 500 MG [Concomitant]
     Active Substance: METAMIZOLE
     Indication: SPINAL DECOMPRESSION
     Dosage: 4000 MILLIGRAM DAILY; 2?2?2?2
     Dates: start: 201812, end: 201902

REACTIONS (1)
  - Dupuytren^s contracture [Not Recovered/Not Resolved]

NARRATIVE: CASE EVENT DATE: 201909
